FAERS Safety Report 6911382-0 (Version None)
Quarter: 2010Q3

REPORT INFORMATION
  Report Type: 
  Country: None (occurrence: None)
  Receive Date: 20100806
  Receipt Date: 20100729
  Transmission Date: 20110219
  Serious: Yes (Life-Threatening, Hospitalization)
  Sender: FDA-Public Use
  Company Number: RO-ABBOTT-10P-135-0660552-00

PATIENT
  Sex: Female
  Weight: 60 kg

DRUGS (1)
  1. HUMIRA [Suspect]
     Indication: PSORIASIS
     Route: 058
     Dates: start: 20100201, end: 20100602

REACTIONS (7)
  - ASTHENIA [None]
  - COMA [None]
  - CONFUSIONAL STATE [None]
  - DISSEMINATED TUBERCULOSIS [None]
  - PYREXIA [None]
  - SEPSIS [None]
  - TUBERCULOSIS OF CENTRAL NERVOUS SYSTEM [None]
